FAERS Safety Report 6869475-2 (Version None)
Quarter: 2010Q3

REPORT INFORMATION
  Report Type: 
  Country: None (occurrence: None)
  Receive Date: 20100721
  Receipt Date: 20100721
  Transmission Date: 20110219
  Serious: Yes (Life-Threatening, Other)
  Sender: FDA-Public Use
  Company Number: None

PATIENT
  Age: 64 Year
  Sex: Female
  Weight: 67.1324 kg

DRUGS (2)
  1. PHENERGAN [Suspect]
     Indication: NAUSEA
     Dosage: 12MG 1 IV ; 25MG 1 IV
     Route: 042
     Dates: start: 20100511, end: 20100511
  2. PHENERGAN [Suspect]
     Indication: PLEURISY
     Dosage: 12MG 1 IV ; 25MG 1 IV
     Route: 042
     Dates: start: 20100511, end: 20100511

REACTIONS (9)
  - ASTHENIA [None]
  - DRUG INEFFECTIVE [None]
  - EYE PAIN [None]
  - MOVEMENT DISORDER [None]
  - NERVE INJURY [None]
  - PAIN [None]
  - SCREAMING [None]
  - VEIN PAIN [None]
  - VISUAL IMPAIRMENT [None]
